FAERS Safety Report 17537429 (Version 1)
Quarter: 2020Q1

REPORT INFORMATION
  Report Type: Spontaneous
  Country: NO (occurrence: NO)
  Receive Date: 20200313
  Receipt Date: 20200313
  Transmission Date: 20200409
  Serious: Yes (Other)
  Sender: FDA-Public Use
  Company Number: NO-TEVA-2020-NO-1195920

PATIENT
  Age: 56 Year
  Sex: Female
  Weight: 80 kg

DRUGS (4)
  1. AJOVY [Suspect]
     Active Substance: FREMANEZUMAB-VFRM
     Indication: MIGRAINE
     Dosage: THE USUAL DOSAGE - DOCTOR DIDN^T GIVE ME BACK THE PACKAGING
     Route: 058
     Dates: start: 20200117, end: 20200219
  2. RELPAX [Concomitant]
     Active Substance: ELETRIPTAN HYDROBROMIDE
     Dates: start: 202001
  3. UTROGESTAN [Concomitant]
     Active Substance: PROGESTERONE
     Dates: start: 201601
  4. ESTRADOT [Concomitant]
     Active Substance: ESTRADIOL
     Dates: start: 201801

REACTIONS (6)
  - Pain [Not Recovered/Not Resolved]
  - Influenza like illness [Recovering/Resolving]
  - Urinary retention [Not Recovered/Not Resolved]
  - Constipation [Not Recovered/Not Resolved]
  - Enthesopathy [Not Recovered/Not Resolved]
  - Fatigue [Not Recovered/Not Resolved]

NARRATIVE: CASE EVENT DATE: 20200123
